FAERS Safety Report 17876396 (Version 2)
Quarter: 2020Q2

REPORT INFORMATION
  Report Type: Spontaneous
  Country: AE (occurrence: AE)
  Receive Date: 20200609
  Receipt Date: 20200617
  Transmission Date: 20200714
  Serious: Yes (Other)
  Sender: FDA-Public Use
  Company Number: NVSC2020AE159984

PATIENT
  Age: 37 Year
  Sex: Male

DRUGS (1)
  1. COSENTYX [Suspect]
     Active Substance: SECUKINUMAB
     Indication: PSORIASIS
     Dosage: 2 DF, QW (LOADING DOSE, 2 VIAL)
     Route: 065
     Dates: start: 20200528

REACTIONS (5)
  - Pyrexia [Recovering/Resolving]
  - Nasopharyngitis [Recovered/Resolved]
  - Fatigue [Recovering/Resolving]
  - Cough [Recovered/Resolved]
  - COVID-19 [Recovering/Resolving]

NARRATIVE: CASE EVENT DATE: 20200531
